FAERS Safety Report 4370029-0 (Version None)
Quarter: 2004Q2

REPORT INFORMATION
  Report Type: 
  Country: None (occurrence: None)
  Receive Date: 20040525
  Receipt Date: 20040511
  Transmission Date: 20050107
  Serious: Yes (Death, Life-Threatening, Hospitalization, Other)
  Sender: FDA-Public Use
  Company Number: RENA-10707

PATIENT
  Age: 76 Year
  Sex: Male
  Weight: 54.5 kg

DRUGS (15)
  1. RENAGEL [Suspect]
     Indication: HYPERPHOSPHATAEMIA
     Dosage: 2.25 G QD PO
     Route: 048
     Dates: start: 20030930, end: 20031026
  2. RENAGEL [Suspect]
     Indication: HYPERPHOSPHATAEMIA
     Dosage: 3 G QD PO
     Route: 048
     Dates: start: 20030826, end: 20030929
  3. ALPRAZOLAM [Concomitant]
  4. TROXIPIDE [Concomitant]
  5. TIAPRIDE HYDROCHLORIDE [Concomitant]
  6. NICERGOLINE [Concomitant]
  7. MANIDIPINE HYDROCHLORIDE [Concomitant]
  8. DOXAZOSIN MESYLATE [Concomitant]
  9. DIPYRIDAMOLE [Concomitant]
  10. AMLODIPINE BESYLATE [Concomitant]
  11. FUROSEMIDE [Concomitant]
  12. ALOSENN [Concomitant]
  13. SENNA LEAF [Concomitant]
  14. SODIUM PICOSULFATE [Concomitant]
  15. EBASTINE [Concomitant]

REACTIONS (14)
  - ANOREXIA [None]
  - BLOOD CREATINE PHOSPHOKINASE INCREASED [None]
  - BLOOD UREA INCREASED [None]
  - CARDIAC FAILURE ACUTE [None]
  - CONSTIPATION [None]
  - ENTEROCOLITIS HAEMORRHAGIC [None]
  - FEELING ABNORMAL [None]
  - GENERAL PHYSICAL HEALTH DETERIORATION [None]
  - HAEMODIALYSIS [None]
  - ILEUS [None]
  - INTESTINAL OBSTRUCTION [None]
  - PULMONARY INFARCTION [None]
  - URINARY BLADDER HAEMORRHAGE [None]
  - WHITE BLOOD CELL COUNT INCREASED [None]
